FAERS Safety Report 8808152 (Version 1)
Quarter: 2012Q4

REPORT INFORMATION
  Report Type: 
  Country: US (occurrence: US)
  Receive Date: 20120925
  Receipt Date: 20120925
  Transmission Date: 20130627
  Serious: No
  Sender: FDA-Public Use
  Company Number: US-ASTRAZENECA-2012SE65955

PATIENT
  Age: 42 Year
  Sex: Male

DRUGS (2)
  1. LISINOPRIL [Suspect]
     Route: 048
  2. ATACAND [Concomitant]

REACTIONS (2)
  - Adverse drug reaction [Unknown]
  - Cough [Unknown]
